FAERS Safety Report 14128797 (Version 1)
Quarter: 2017Q4

REPORT INFORMATION
  Report Type: Spontaneous
  Country: US (occurrence: US)
  Receive Date: 20171026
  Receipt Date: 20171026
  Transmission Date: 20180321
  Serious: No
  Sender: FDA-Public Use
  Company Number: US-ASTRAZENECA-2017SF06121

PATIENT
  Sex: Female

DRUGS (3)
  1. LANTUS [Concomitant]
     Active Substance: INSULIN GLARGINE
  2. VICTOZA [Concomitant]
     Active Substance: LIRAGLUTIDE
  3. BYDUREON [Suspect]
     Active Substance: EXENATIDE
     Dosage: UNKNOWN
     Route: 065
     Dates: start: 20171006

REACTIONS (2)
  - Injection site vesicles [Not Recovered/Not Resolved]
  - Injection site pruritus [Recovering/Resolving]
